FAERS Safety Report 5407224-5 (Version None)
Quarter: 2007Q3

REPORT INFORMATION
  Report Type: 
  Country: None (occurrence: None)
  Receive Date: 20070807
  Receipt Date: 20070801
  Transmission Date: 20080115
  Serious: Yes (Death, Hospitalization)
  Sender: FDA-Public Use
  Company Number: A0667673A

PATIENT
  Age: 55 Year
  Sex: Female

DRUGS (2)
  1. ZOFRAN [Suspect]
     Dosage: 40MG VARIABLE DOSE
     Route: 065
  2. CHEMOTHERAPY [Concomitant]

REACTIONS (1)
  - BREAST CANCER [None]
